FAERS Safety Report 24713042 (Version 3)
Quarter: 2024Q4

REPORT INFORMATION
  Report Type: Spontaneous
  Country: JP (occurrence: JP)
  Receive Date: 20241209
  Receipt Date: 20241223
  Transmission Date: 20250114
  Serious: Yes (Death, Other)
  Sender: ASTELLAS
  Company Number: JP-ASTELLAS-2024-AER-007755

PATIENT
  Age: 65 Year
  Sex: Male

DRUGS (2)
  1. VYLOY [Suspect]
     Active Substance: ZOLBETUXIMAB-CLZB
     Indication: Gastric cancer
     Route: 042
     Dates: start: 20240724
  2. VYLOY [Suspect]
     Active Substance: ZOLBETUXIMAB-CLZB
     Route: 042
     Dates: start: 20240912

REACTIONS (7)
  - Pneumothorax [Unknown]
  - Death [Fatal]
  - Oedema [Unknown]
  - Diarrhoea [Unknown]
  - Face oedema [Unknown]
  - Oedema peripheral [Unknown]
  - Product use issue [Unknown]

NARRATIVE: CASE EVENT DATE: 20240912
